FAERS Safety Report 5648387-6 (Version None)
Quarter: 2008Q1

REPORT INFORMATION
  Report Type: 
  Country: None (occurrence: None)
  Receive Date: 20080131
  Receipt Date: 20071019
  Transmission Date: 20080703
  Serious: No
  Sender: FDA-Public Use
  Company Number: 2005PV002881

PATIENT
  Age: 74 Year
  Sex: Female
  Weight: 61.2 kg

DRUGS (10)
  1. EXENATIDE (EXENATIDE)PEN, DISPOSABLE [Suspect]
     Indication: TYPE 2 DIABETES MELLITUS
     Dosage: 5, 10 UG, 2/D, SUBCUTANEOUS
     Route: 058
     Dates: start: 20051003, end: 20051101
  2. EXENATIDE (EXENATIDE)PEN, DISPOSABLE [Suspect]
     Indication: TYPE 2 DIABETES MELLITUS
     Dosage: 5, 10 UG, 2/D, SUBCUTANEOUS
     Route: 058
     Dates: start: 20051101, end: 20051101
  3. EXENATIDE (EXENATIDE)PEN, DISPOSABLE [Suspect]
     Indication: TYPE 2 DIABETES MELLITUS
     Dosage: 5, 10 UG, 2/D, SUBCUTANEOUS
     Route: 058
     Dates: start: 20051101
  4. EXENATIDE DISPOSABLE DEVICE (EXENATIDE PEN) [Concomitant]
  5. GLUCOPHAGE [Concomitant]
  6. GLYBURIDE [Concomitant]
  7. NOVOLOG [Concomitant]
  8. METFORMIN HCL [Concomitant]
  9. AVANDIA [Concomitant]
  10. INSULIN (INSULIN) [Concomitant]

REACTIONS (7)
  - DECREASED APPETITE [None]
  - DIARRHOEA [None]
  - MALAISE [None]
  - NAUSEA [None]
  - STOMACH DISCOMFORT [None]
  - VOMITING [None]
  - WEIGHT DECREASED [None]
